FAERS Safety Report 16872873 (Version 9)
Quarter: 2020Q4

REPORT INFORMATION
  Report Type: Report from Study
  Country: US (occurrence: US)
  Receive Date: 20191001
  Receipt Date: 20201113
  Transmission Date: 20210113
  Serious: Yes (Death, Hospitalization, Other)
  Sender: FDA-Public Use
  Company Number: US-ROCHE-2418181

PATIENT
  Age: 72 Year
  Sex: Male
  Weight: 95.4 kg

DRUGS (10)
  1. ATEZOLIZUMAB. [Suspect]
     Active Substance: ATEZOLIZUMAB
     Indication: COLORECTAL CANCER METASTATIC
     Dosage: ON 13/FEB/2020, THE RECENT DOSE (840 MG) OF ATEZOLIZUMAB WAS ADMINISTERED PRIOR TO AE. ON 17/JUN/202
     Route: 042
     Dates: start: 20190829
  2. LEUCOVORIN CALCIUM. [Suspect]
     Active Substance: LEUCOVORIN CALCIUM
     Indication: COLORECTAL CANCER METASTATIC
     Dosage: ON 13/FEB/2020, THE RECENT DOSE (796 MG) OF LEUCOVORIN CALCIUM WAS ADMINISTERED PRIOR TO AE. 400MG/M
     Route: 042
     Dates: start: 20190829
  3. SODIUM BICARBONATE. [Concomitant]
     Active Substance: SODIUM BICARBONATE
  4. OXALIPLATIN. [Suspect]
     Active Substance: OXALIPLATIN
     Indication: COLORECTAL CANCER METASTATIC
     Dosage: ON 13/FEB/2020, THE RECENT DOSE (130 MG) OF OXALIPLATIN WAS ADMINISTERED PRIOR TO AE. CYCLE 1:85MG/M
     Route: 011
     Dates: start: 20190829
  5. ONDANSETRON [Concomitant]
     Active Substance: ONDANSETRON
  6. PALONOSETRON. [Concomitant]
     Active Substance: PALONOSETRON HYDROCHLORIDE
  7. LOPERAMIDE [Concomitant]
     Active Substance: LOPERAMIDE
  8. GLIPIZIDE. [Concomitant]
     Active Substance: GLIPIZIDE
  9. 5-FLUOROURACIL [Suspect]
     Active Substance: FLUOROURACIL
     Indication: COLORECTAL CANCER METASTATIC
     Dosage: ON 13/FEB/2020, THE RECENT DOSE  (3975 MG) OF 5-FLUOROURACIL WAS ADMINISTERED PRIOR TO AE. CYCLE 1:
     Route: 042
     Dates: start: 20190829
  10. BEVACIZUMAB. [Suspect]
     Active Substance: BEVACIZUMAB
     Indication: COLORECTAL CANCER METASTATIC
     Dosage: CYCLE 1: 5MG/KG IV OVER 90 MINUTES ON DAY 1 LAST ADMINISTERED DATE: 29/AUG/2019
     Route: 042
     Dates: start: 20190829

REACTIONS (10)
  - Death [Fatal]
  - Small intestinal obstruction [Recovered/Resolved]
  - Fatigue [Recovered/Resolved]
  - Aspiration [Recovered/Resolved]
  - Hyponatraemia [Recovered/Resolved]
  - Acute kidney injury [Recovered/Resolved]
  - Diarrhoea [Recovered/Resolved]
  - Pneumonia [Not Recovered/Not Resolved]
  - Fatigue [Recovered/Resolved]
  - Oesophagitis [Unknown]

NARRATIVE: CASE EVENT DATE: 20190831
